FAERS Safety Report 13319806 (Version 2)
Quarter: 2017Q1

REPORT INFORMATION
  Report Type: Spontaneous
  Country: PT (occurrence: PT)
  Receive Date: 20170309
  Receipt Date: 20170322
  Transmission Date: 20170428
  Serious: Yes (Disabling)
  Sender: FDA-Public Use
  Company Number: PT-ROCHE-1902903

PATIENT
  Sex: Female

DRUGS (1)
  1. RIVOTRIL [Suspect]
     Active Substance: CLONAZEPAM
     Indication: FEELING OF RELAXATION
     Route: 048
     Dates: start: 20170302

REACTIONS (4)
  - Dizziness [Recovered/Resolved]
  - Hypersomnia [Recovered/Resolved]
  - Dysstasia [Recovered/Resolved]
  - Off label use [Unknown]
